FAERS Safety Report 6176336-3 (Version None)
Quarter: 2009Q2

REPORT INFORMATION
  Report Type: 
  Country: None (occurrence: None)
  Receive Date: 20090501
  Receipt Date: 20090422
  Transmission Date: 20091009
  Serious: Yes (Hospitalization)
  Sender: FDA-Public Use
  Company Number: US-BIOGENIDEC-2007BI026114

PATIENT
  Age: 75 Year
  Sex: Female

DRUGS (1)
  1. AVONEX [Suspect]
     Indication: DRUG USE FOR UNKNOWN INDICATION
     Route: 030
     Dates: start: 20060216

REACTIONS (6)
  - CRYING [None]
  - DEPRESSED MOOD [None]
  - DIARRHOEA [None]
  - FALL [None]
  - HIP ARTHROPLASTY [None]
  - LOSS OF CONSCIOUSNESS [None]
